FAERS Safety Report 9016222 (Version 1)
Quarter: 2013Q1

REPORT INFORMATION
  Report Type: Report from Study
  Country: ES (occurrence: ES)
  Receive Date: 20130116
  Receipt Date: 20130116
  Transmission Date: 20140127
  Serious: Yes (Death)
  Sender: FDA-Public Use
  Company Number: ES-BAXTER-2013BAX001320

PATIENT
  Age: 67 Year
  Sex: Male
  Weight: 71 kg

DRUGS (8)
  1. GENOXAL [Suspect]
     Indication: CHRONIC LYMPHOCYTIC LEUKAEMIA
     Dosage: 270 UNIT NOT REPORTED
     Route: 042
     Dates: start: 20110510, end: 20111123
  2. RITUXIMAB [Suspect]
     Indication: CHRONIC LYMPHOCYTIC LEUKAEMIA
     Dosage: 899 UNIT NOT REPORTED
     Route: 042
     Dates: start: 20110510, end: 20111121
  3. FLUDARABINE [Suspect]
     Indication: CHRONIC LYMPHOCYTIC LEUKAEMIA
     Dosage: 34 UNIT NOT REPORTED
     Route: 042
     Dates: start: 20110510, end: 20111123
  4. NEUPOGEN [Concomitant]
     Indication: NEUTROPENIA
     Route: 065
  5. MEROPENEM [Concomitant]
     Indication: RESPIRATORY TRACT INFECTION
     Route: 042
     Dates: start: 20111203, end: 20111209
  6. CASPOFUNGIN [Concomitant]
     Indication: RESPIRATORY TRACT INFECTION
     Route: 042
     Dates: start: 20111209, end: 20120207
  7. SEPTRIN [Concomitant]
     Indication: RESPIRATORY TRACT INFECTION
     Route: 065
     Dates: start: 20111201, end: 20111209
  8. ACYCLOVIR [Concomitant]
     Indication: RESPIRATORY TRACT INFECTION
     Route: 065
     Dates: start: 20111201, end: 20120207

REACTIONS (7)
  - Febrile neutropenia [Fatal]
  - Respiratory failure [Fatal]
  - Malnutrition [Fatal]
  - Hypoproteinaemia [Fatal]
  - Generalised oedema [Fatal]
  - Cholestasis [Fatal]
  - Septic shock [Fatal]
